FAERS Safety Report 4864527-0 (Version None)
Quarter: 2005Q4

REPORT INFORMATION
  Report Type: 
  Country: None (occurrence: None)
  Receive Date: 20051222
  Receipt Date: 20010509
  Transmission Date: 20060501
  Serious: Yes (Hospitalization)
  Sender: FDA-Public Use
  Company Number: US-ROCHE-260218

PATIENT
  Age: 52 Year
  Sex: Male
  Weight: 91.8 kg

DRUGS (15)
  1. DACLIZUMAB [Suspect]
     Route: 042
     Dates: start: 20000526, end: 20000610
  2. DACLIZUMAB [Suspect]
     Route: 042
     Dates: start: 20000611, end: 20000713
  3. MYCOPHENOLATE MOFETIL [Suspect]
     Route: 065
     Dates: start: 20000526
  4. NEORAL [Suspect]
     Route: 065
     Dates: start: 20000526
  5. PREDNISONE TAB [Suspect]
     Route: 065
     Dates: start: 20000526
  6. THEOPHYLLINE [Concomitant]
     Dates: start: 20000530
  7. DOCUSATE [Concomitant]
     Dates: start: 20000528
  8. FAMOTIDINE [Concomitant]
     Dates: start: 20000526
  9. TUMS [Concomitant]
     Dates: start: 20000528
  10. PRAVASTATIN [Concomitant]
  11. ASPIRIN [Concomitant]
  12. CITALOPRAM HYDROBROMIDE [Concomitant]
  13. LISINOPRIL [Concomitant]
  14. VALSARTAN [Concomitant]
  15. ATORVASTATIN [Concomitant]

REACTIONS (2)
  - PNEUMONIA [None]
  - VENTRICULAR TACHYCARDIA [None]
